FAERS Safety Report 13088731 (Version 5)
Quarter: 2019Q1

REPORT INFORMATION
  Report Type: Spontaneous
  Country: US (occurrence: US)
  Receive Date: 20170105
  Receipt Date: 20190118
  Transmission Date: 20190417
  Serious: Yes (Other)
  Sender: FDA-Public Use
  Company Number: US-PFIZER INC-2016604593

PATIENT
  Age: 20 Year
  Sex: Male

DRUGS (1)
  1. GENOTROPIN [Suspect]
     Active Substance: SOMATROPIN
     Dosage: 4 MG, DAILY
     Dates: start: 20021108, end: 20160728

REACTIONS (15)
  - Red blood cell count decreased [Unknown]
  - Eosinophil count decreased [Unknown]
  - Lymphocyte percentage increased [Unknown]
  - Insulin-like growth factor increased [Unknown]
  - Malaise [Unknown]
  - Haematocrit decreased [Unknown]
  - Blood bilirubin increased [Unknown]
  - Insulin-like growth factor decreased [Unknown]
  - Mean cell haemoglobin concentration increased [Unknown]
  - Red cell distribution width decreased [Unknown]
  - Loss of consciousness [Unknown]
  - White blood cell count decreased [Unknown]
  - Monocyte count decreased [Unknown]
  - Basophil percentage increased [Unknown]
  - Haemoglobin decreased [Unknown]

NARRATIVE: CASE EVENT DATE: 20170616
